FAERS Safety Report 6375222-3 (Version None)
Quarter: 2009Q3

REPORT INFORMATION
  Report Type: 
  Country: None (occurrence: None)
  Receive Date: 20090921
  Receipt Date: 20090921
  Transmission Date: 20100115
  Serious: Yes (Other)
  Sender: FDA-Public Use
  Company Number: None

PATIENT
  Sex: Male
  Weight: 87.3 kg

DRUGS (2)
  1. TRIMETHOBENZAMIDE HCL [Suspect]
     Indication: ANTIEMETIC SUPPORTIVE CARE
     Dosage: 300MG  3 TIMES A DAY 047
     Dates: start: 20090915
  2. TRIMETHOBENZAMIDE HCL [Suspect]
     Indication: ANTIEMETIC SUPPORTIVE CARE
     Dosage: 300MG  3 TIMES A DAY 047
     Dates: start: 20090916

REACTIONS (3)
  - FATIGUE [None]
  - HYPERHIDROSIS [None]
  - PALPITATIONS [None]
